FAERS Safety Report 7443613-5 (Version None)
Quarter: 2011Q2

REPORT INFORMATION
  Report Type: 
  Country: None (occurrence: None)
  Receive Date: 20110428
  Receipt Date: 20110416
  Transmission Date: 20111010
  Serious: Yes (Other)
  Sender: FDA-Public Use
  Company Number: PHHY2011US33508

PATIENT
  Age: 65 Year

DRUGS (2)
  1. GLEEVEC [Suspect]
     Dosage: 600 MG, DAILY
     Route: 048
  2. SPRYCEL [Concomitant]
     Dosage: 140 MG, DAILY

REACTIONS (2)
  - GASTROINTESTINAL TOXICITY [None]
  - DRUG INTOLERANCE [None]
